FAERS Safety Report 21839431 (Version 2)
Quarter: 2023Q1

REPORT INFORMATION
  Report Type: Spontaneous
  Country: IT (occurrence: IT)
  Receive Date: 20230109
  Receipt Date: 20230324
  Transmission Date: 20230418
  Serious: Yes (Hospitalization)
  Sender: FDA-Public Use
  Company Number: IT-ROCHE-3246339

PATIENT
  Age: 45 Year
  Sex: Female
  Weight: 65 kg

DRUGS (21)
  1. TUKYSA [Suspect]
     Active Substance: TUCATINIB
     Indication: HER2 positive breast cancer
     Dosage: FREQUNCY:4 TIMES
     Route: 048
     Dates: start: 20221121
  2. CAPECITABINE [Suspect]
     Active Substance: CAPECITABINE
     Indication: HER2 positive breast cancer
     Dosage: FREQUENCY 4 TIMES
     Route: 048
     Dates: start: 20221121
  3. TRASTUZUMAB [Suspect]
     Active Substance: TRASTUZUMAB
     Indication: HER2 positive breast cancer
     Dosage: FREQUENCY : EVERY THREE WEEK.MOST RECENT DOSE PRIOR TO THE EVENT: 21/NOV/2022I.V. DRIP
     Route: 041
     Dates: start: 20170418, end: 20170418
  4. PERTUZUMAB [Suspect]
     Active Substance: PERTUZUMAB
     Indication: HER2 positive breast cancer
     Dosage: INTRAVENOUS (NOT OTHERWISE SPECIFIED), FREQYENCY:EVERY THREE WEEK,MOST RECENT DOSE PRIOR TO THE EVEN
     Route: 042
     Dates: start: 20170418, end: 20170418
  5. ADO-TRASTUZUMAB EMTANSINE [Suspect]
     Active Substance: ADO-TRASTUZUMAB EMTANSINE
     Indication: HER2 positive breast cancer
     Dosage: INTRAVENOUS (NOT OTHERWISE SPECIFIED) ,FRQUENCY:EVERY THREE WEEK,MOST RECENT DOSE PRIOR TO THE EVENT
     Route: 042
     Dates: start: 20200803
  6. EXEMESTANE [Suspect]
     Active Substance: EXEMESTANE
     Indication: HER2 positive breast cancer
     Dosage: MOST RECENT DOSE PRIOR TO AE 03/AUG/2020
     Route: 048
     Dates: start: 20171019
  7. DOCETAXEL [Suspect]
     Active Substance: DOCETAXEL
     Indication: HER2 positive breast cancer
     Dosage: FREQUNCY: EVERY THREE WEEK,INTRAVENOUS (NOT OTHERWISE SPECIFIED), MOST RECENT DOSE PRIOR TO THE EVEN
     Route: 042
     Dates: start: 20170418, end: 20170418
  8. FOLIC ACID [Concomitant]
     Active Substance: FOLIC ACID
     Dosage: ONGOING = CHECKED
     Dates: start: 20220622
  9. CHLORPHENIRAMINE [Concomitant]
     Active Substance: CHLORPHENIRAMINE
     Dosage: ONGOING = CHECKED
     Dates: start: 20170718
  10. CYANOCOBALAMIN\PYRIDOXINE\THIAMINE [Concomitant]
     Active Substance: CYANOCOBALAMIN\PYRIDOXINE\THIAMINE
     Dosage: ONGOING = CHECKED
     Dates: start: 20220622
  11. ENANTONE LP [Concomitant]
     Active Substance: LEUPROLIDE ACETATE
     Dosage: ONGOING = CHECKED
     Dates: start: 20171018
  12. ALDACTONE [Concomitant]
     Active Substance: SPIRONOLACTONE
     Dosage: ONGOING = CHECKED
     Dates: start: 20221012
  13. OXYCODONE [Concomitant]
     Active Substance: OXYCODONE
     Dosage: ONGOING = CHECKED
     Dates: start: 20221109
  14. TIOBEC [THIOCTIC ACID] [Concomitant]
     Dosage: ONGOING = CHECKED
     Dates: start: 20220622
  15. LEVETIRACETAM [Concomitant]
     Active Substance: LEVETIRACETAM
     Dosage: ONGOING = CHECKED
     Dates: start: 20210614
  16. ARIXTRA [Concomitant]
     Active Substance: FONDAPARINUX SODIUM
     Indication: Deep vein thrombosis
     Dosage: ONGOING = CHECKED
     Dates: start: 20221111
  17. VARCODES [Concomitant]
     Dosage: ONGOING = CHECKED
     Dates: start: 20220921
  18. VARCODES [Concomitant]
     Dosage: ONGOING = CHECKED
     Dates: start: 20220727
  19. LANSOPRAZOLE [Concomitant]
     Active Substance: LANSOPRAZOLE
     Dosage: ONGOING = CHECKED
     Dates: start: 20201005
  20. FUROSEMIDE [Concomitant]
     Active Substance: FUROSEMIDE
     Dosage: ONGOING = CHECKED
     Dates: start: 20221012
  21. MOVICOL [Concomitant]
     Active Substance: POLYETHYLENE GLYCOL 3350\POTASSIUM CHLORIDE\SODIUM BICARBONATE\SODIUM CHLORIDE
     Dosage: ONGOING = CHECKED
     Dates: start: 20220413

REACTIONS (1)
  - Neurological decompensation [Not Recovered/Not Resolved]

NARRATIVE: CASE EVENT DATE: 20221212
